FAERS Safety Report 7132242-9 (Version None)
Quarter: 2010Q4

REPORT INFORMATION
  Report Type: 
  Country: None (occurrence: None)
  Receive Date: 20101129
  Receipt Date: 20101129
  Transmission Date: 20110411
  Serious: Yes (Disabling, Other)
  Sender: FDA-Public Use
  Company Number: None

PATIENT
  Age: 68 Year
  Sex: Female
  Weight: 90.7194 kg

DRUGS (1)
  1. ARIMIDEX [Suspect]
     Indication: BREAST CANCER
     Dosage: 1MG 1 A DAY ORAL
     Route: 048
     Dates: start: 20091109, end: 20100612

REACTIONS (11)
  - ANXIETY [None]
  - ARTHRALGIA [None]
  - ASTHENIA [None]
  - BACK PAIN [None]
  - GAIT DISTURBANCE [None]
  - HYPERHIDROSIS [None]
  - INSOMNIA [None]
  - MIGRAINE [None]
  - MYALGIA [None]
  - PARAESTHESIA [None]
  - WALKING AID USER [None]
